FAERS Safety Report 16078796 (Version 1)
Quarter: 2019Q1

REPORT INFORMATION
  Report Type: Spontaneous
  Country: US (occurrence: US)
  Receive Date: 20190315
  Receipt Date: 20190315
  Transmission Date: 20190418
  Serious: No
  Sender: FDA-Public Use
  Company Number: US-PERRIGO-18US001510

PATIENT
  Age: 58 Year
  Sex: Female
  Weight: 68.03 kg

DRUGS (2)
  1. SCOPOLAMINE [Suspect]
     Active Substance: SCOPOLAMINE
     Indication: MOTION SICKNESS
     Dosage: 1 MG, EVERY 3 DAYS
     Route: 062
     Dates: start: 20180128, end: 20180204
  2. LOSARTAN. [Concomitant]
     Active Substance: LOSARTAN
     Indication: HYPERTENSION
     Dosage: UNK
     Route: 065

REACTIONS (6)
  - Disturbance in attention [Recovered/Resolved]
  - Vision blurred [Recovered/Resolved]
  - Nervousness [Recovered/Resolved]
  - Asthenia [Recovered/Resolved]
  - Gait disturbance [Recovered/Resolved]
  - Chest discomfort [Recovered/Resolved]

NARRATIVE: CASE EVENT DATE: 20180205
